FAERS Safety Report 12189616 (Version 3)
Quarter: 2016Q4

REPORT INFORMATION
  Report Type: Report from Study
  Country: US (occurrence: US)
  Receive Date: 20160318
  Receipt Date: 20161130
  Transmission Date: 20170207
  Serious: Yes (Hospitalization, Other)
  Sender: FDA-Public Use
  Company Number: US-ROCHE-1725796

PATIENT
  Age: 56 Year
  Sex: Female
  Weight: 50.9 kg

DRUGS (8)
  1. PACLITAXEL. [Suspect]
     Active Substance: PACLITAXEL
     Indication: OVARIAN EPITHELIAL CANCER
     Dosage: LAST DOSE PRIOR TO ADVERSE EVENT: 15/JAN/2016: TOTAL DOSE FOR CYCLE 5: 366 MG
     Route: 042
     Dates: start: 20150911
  2. VELIPARIB [Suspect]
     Active Substance: VELIPARIB
     Indication: OVARIAN EPITHELIAL CANCER
     Dosage: LAST DOSE PRIOR TO ADVERSE EVENT: 04/JAN/2016: TOTAL DOSE FOR CYCLE 5: 2100 MG
     Route: 048
     Dates: start: 20150911
  3. VELIPARIB [Suspect]
     Active Substance: VELIPARIB
     Dosage: CYCLE 2
     Route: 048
     Dates: start: 20151009
  4. BEVACIZUMAB [Suspect]
     Active Substance: BEVACIZUMAB
     Dosage: CYCLE 3
     Route: 042
     Dates: start: 20151106
  5. VELIPARIB [Suspect]
     Active Substance: VELIPARIB
     Dosage: CYCLE 3
     Route: 048
     Dates: start: 20151106
  6. BEVACIZUMAB [Suspect]
     Active Substance: BEVACIZUMAB
     Dosage: CYCLE 2
     Route: 042
     Dates: start: 20151009
  7. BEVACIZUMAB [Suspect]
     Active Substance: BEVACIZUMAB
     Indication: OVARIAN EPITHELIAL CANCER
     Dosage: LAST DOSE PRIOR TO ADVERSE EVENT: 31/DEC/2015 TOTAL DOSE FOR CYCLE 5: 755 MG
     Route: 042
     Dates: start: 20150911
  8. CARBOPLATIN. [Suspect]
     Active Substance: CARBOPLATIN
     Indication: OVARIAN EPITHELIAL CANCER
     Dosage: AUC=6 DOSE REDUCED TO AUC = 5 ?LAST DOSE PRIOR TO ADVERSE EVENT: 31/DEC/2015: TOTAL DOSE FOR CYCLE 5
     Route: 042
     Dates: start: 20150911

REACTIONS (9)
  - Platelet count decreased [Recovered/Resolved]
  - White blood cell count decreased [Recovered/Resolved]
  - Hypertension [Unknown]
  - Anaemia [Recovered/Resolved]
  - Pain [Unknown]
  - Hypertension [Recovered/Resolved]
  - White blood cell count decreased [Unknown]
  - Anaemia [Unknown]
  - Neutrophil count decreased [Unknown]

NARRATIVE: CASE EVENT DATE: 20160115
